FAERS Safety Report 4772363-9 (Version None)
Quarter: 2005Q3

REPORT INFORMATION
  Report Type: 
  Country: None (occurrence: None)
  Receive Date: 20050919
  Receipt Date: 20041118
  Transmission Date: 20060218
  Serious: No
  Sender: FDA-Public Use
  Company Number: US-BRISTOL-MYERS SQUIBB COMPANY-12770830

PATIENT
  Age: 39 Year
  Weight: 62 kg

DRUGS (3)
  1. KENALOG-40 [Suspect]
     Dosage: RECEIVED ^ABOUT 6 MONTHS AGO^
     Route: 051
     Dates: start: 20040101
  2. DEXAMETHASONE [Suspect]
     Dosage: RECEIVED ^ABOUT 6 MONTHS AGO^
     Dates: start: 20040101
  3. FLONASE [Concomitant]
     Route: 045

REACTIONS (2)
  - INJECTION SITE ATROPHY [None]
  - INJECTION SITE DISCOLOURATION [None]
